FAERS Safety Report 4944804-5 (Version None)
Quarter: 2006Q1

REPORT INFORMATION
  Report Type: 
  Country: None (occurrence: None)
  Receive Date: 20060118
  Receipt Date: 20050810
  Transmission Date: 20060701
  Serious: Yes (Other)
  Sender: FDA-Public Use
  Company Number: US-JNJFOC-20050605532

PATIENT
  Age: 56 Year
  Sex: Female

DRUGS (2)
  1. DOXIL [Suspect]
     Indication: OVARIAN CANCER
     Dosage: X 5 CYCLES
     Dates: start: 20041111, end: 20050303
  2. TAMOXIFEN CITRATE [Concomitant]

REACTIONS (1)
  - HEPATITIS [None]
